FAERS Safety Report 7813737-9 (Version None)
Quarter: 2011Q4

REPORT INFORMATION
  Report Type: 
  Country: None (occurrence: None)
  Receive Date: 20111014
  Receipt Date: 20110930
  Transmission Date: 20120403
  Serious: Yes (Hospitalization)
  Sender: FDA-Public Use
  Company Number: US-BAYER-2011-081850

PATIENT
  Age: 36 Year
  Sex: Female
  Weight: 124.72 kg

DRUGS (5)
  1. YASMIN [Suspect]
     Indication: CONTRACEPTION
     Dosage: UNK
     Dates: start: 20051214, end: 20060120
  2. OMEPRAZOLE [Concomitant]
     Dosage: 20 MG, QD
     Route: 048
  3. HEART MEDICATION [Concomitant]
  4. YASMIN [Suspect]
     Indication: MENSTRUAL CYCLE MANAGEMENT
  5. ONE-A-DAY [Concomitant]
     Route: 048

REACTIONS (7)
  - CEREBROVASCULAR ACCIDENT [None]
  - INJURY [None]
  - AMNESIA [None]
  - DYSPHEMIA [None]
  - NERVOUSNESS [None]
  - PAIN [None]
  - NERVOUS SYSTEM DISORDER [None]
